FAERS Safety Report 8164500-3 (Version None)
Quarter: 2012Q1

REPORT INFORMATION
  Report Type: 
  Country: None (occurrence: None)
  Receive Date: 20120224
  Receipt Date: 20120215
  Transmission Date: 20120608
  Serious: Yes (Other)
  Sender: FDA-Public Use
  Company Number: US-ASTRAZENECA-2011SE72603

PATIENT
  Age: 58 Year
  Sex: Male
  Weight: 86.2 kg

DRUGS (28)
  1. CRESTOR [Suspect]
     Route: 048
  2. FLU SHOT [Concomitant]
     Route: 030
  3. QUINAPRIL [Concomitant]
     Route: 048
  4. SULFAMETHOXAZOLE AND TRIMETHOPRIM [Concomitant]
     Dosage: 800 MG - 160 MG, 1 TABLET TWO TIMES A DAY
     Route: 048
  5. LISINOPRIL [Concomitant]
  6. PHENERGAN W/ DEXTROMETHORPHAN [Concomitant]
     Dosage: 5 ML THREE TIMES A DAY
  7. NICODERM [Concomitant]
     Route: 062
  8. CHANTIX [Concomitant]
     Route: 048
  9. BENZONATATE [Concomitant]
     Indication: COUGH
     Route: 048
  10. RANITIDINE [Concomitant]
     Route: 048
  11. BUSPAR [Concomitant]
     Route: 048
  12. WELLBUTRIN [Concomitant]
  13. ZITHROMAX [Concomitant]
  14. PRILOSEC OTC [Concomitant]
     Route: 048
  15. NITROGLYCERIN [Concomitant]
     Dosage: 1 TAB EVERY 5 MINUTES (NOT TO EXCEED 3 DOSES/15 MIN-IF PAIN PERSISTS, SEEK MEDICAL ATTENTION)
     Route: 060
  16. ATORVASTATIN [Concomitant]
     Route: 048
  17. ATORVASTATIN [Concomitant]
     Route: 048
  18. ASA/CAFFEINE/SALICYLAMIDE [Concomitant]
  19. PLAVIX [Concomitant]
     Route: 048
  20. OMEPRAZOLE [Concomitant]
     Route: 048
  21. BETAMETHASONE-CLOTRIMAZOLE TOPICAL [Concomitant]
     Dosage: 0.05 %-1 %, 1 APP APPLIED 2 TIMES A DAY
     Route: 061
  22. QUINAPRIL [Concomitant]
     Route: 048
  23. PROTONIX [Concomitant]
     Dosage: ONCE A DAY
     Route: 048
  24. ALBUTEROL (CFC FREE) [Concomitant]
     Indication: WHEEZING
     Dosage: 2 PUFFS INHALED EVERY 4 TO 6 HOURS AS NEEDED
     Route: 055
  25. CRESTOR [Suspect]
     Route: 048
  26. METOPROLOL TARTRATE [Concomitant]
     Route: 048
  27. ZETIA [Concomitant]
     Route: 048
  28. CLOPIDOGREL [Concomitant]
     Route: 048

REACTIONS (14)
  - INFLUENZA [None]
  - ADRENAL ADENOMA [None]
  - BRONCHITIS [None]
  - MYOCARDIAL INFARCTION [None]
  - DYSPNOEA [None]
  - CEREBROVASCULAR ACCIDENT [None]
  - NASOPHARYNGITIS [None]
  - NICOTINE DEPENDENCE [None]
  - DIVERTICULUM [None]
  - CHRONIC OBSTRUCTIVE PULMONARY DISEASE [None]
  - HYPERTENSION [None]
  - HYPERLIPIDAEMIA [None]
  - DIABETES MELLITUS [None]
  - VARICOSE VEIN [None]
